FAERS Safety Report 12010721 (Version 1)
Quarter: 2016Q1

REPORT INFORMATION
  Report Type: Spontaneous
  Country: AU (occurrence: AU)
  Receive Date: 20160205
  Receipt Date: 20160205
  Transmission Date: 20160526
  Serious: Yes (Disabling)
  Sender: FDA-Public Use
  Company Number: AU-AMGEN-AUSSP2016012904

PATIENT
  Age: 83 Year
  Sex: Female

DRUGS (1)
  1. PROLIA [Suspect]
     Active Substance: DENOSUMAB
     Indication: PRODUCT USED FOR UNKNOWN INDICATION
     Dosage: 60 MG, UNK
     Route: 065
     Dates: start: 20151008

REACTIONS (7)
  - Malaise [Unknown]
  - Renal impairment [Recovering/Resolving]
  - Nausea [Unknown]
  - Night sweats [Unknown]
  - Oedema peripheral [Unknown]
  - Eczema [Unknown]
  - Dizziness [Unknown]

NARRATIVE: CASE EVENT DATE: 20151008
